FAERS Safety Report 9021850 (Version 1)
Quarter: 2013Q1

REPORT INFORMATION
  Report Type: Spontaneous
  Country: BR (occurrence: BR)
  Receive Date: 20130118
  Receipt Date: 20130118
  Transmission Date: 20140127
  Serious: Yes (Hospitalization, Other)
  Sender: FDA-Public Use
  Company Number: BR-JNJFOC-20130105839

PATIENT
  Sex: Female
  Weight: 73 kg

DRUGS (5)
  1. REMICADE [Suspect]
     Indication: CROHN^S DISEASE
     Route: 042
  2. REMICADE [Suspect]
     Indication: CROHN^S DISEASE
     Route: 042
     Dates: start: 201209
  3. REMICADE [Suspect]
     Indication: CROHN^S DISEASE
     Route: 042
     Dates: start: 2010, end: 201209
  4. CORTICOSTEROIDS [Suspect]
     Indication: PRODUCT USED FOR UNKNOWN INDICATION
     Route: 065
  5. AZATHIOPRINE [Concomitant]
     Indication: CROHN^S DISEASE
     Route: 065
     Dates: start: 2002

REACTIONS (5)
  - Cholelithiasis [Recovered/Resolved]
  - Intestinal ulcer [Recovering/Resolving]
  - Anaemia [Recovering/Resolving]
  - Crohn^s disease [Unknown]
  - Weight increased [Unknown]
